FAERS Safety Report 14116522 (Version 1)
Quarter: 2017Q4

REPORT INFORMATION
  Report Type: Report from Study
  Country: PL (occurrence: PL)
  Receive Date: 20171023
  Receipt Date: 20171023
  Transmission Date: 20180321
  Serious: Yes (Hospitalization)
  Sender: FDA-Public Use
  Company Number: PL-ASTRAZENECA-2017SF05924

PATIENT
  Age: 69 Year
  Sex: Female

DRUGS (7)
  1. ROMAZIC [Concomitant]
     Dosage: 10 MG
  2. CONCOR [Concomitant]
     Active Substance: BISOPROLOL FUMARATE
     Dosage: 05 MG
  3. ACETYLSALICYLIC ACID [Suspect]
     Active Substance: ASPIRIN
     Indication: ACUTE CORONARY SYNDROME
     Dosage: MAINTANANCE THERAPY (NON AZ PRODUCT) 100 MG DAILY
     Route: 048
  4. DIUVER [Concomitant]
     Active Substance: TORSEMIDE
     Dosage: 05 MG
  5. SPIRONOL [Concomitant]
     Active Substance: SPIRONOLACTONE
     Dosage: 25 MG
  6. PRESTARIUM [Concomitant]
     Active Substance: PERINDOPRIL
     Dosage: 05 MG
  7. TICAGRELOR. [Suspect]
     Active Substance: TICAGRELOR
     Indication: ACUTE CORONARY SYNDROME
     Route: 048

REACTIONS (1)
  - Angina unstable [Recovered/Resolved]
